FAERS Safety Report 5360769-9 (Version None)
Quarter: 2007Q2

REPORT INFORMATION
  Report Type: 
  Country: None (occurrence: None)
  Receive Date: 20070530
  Receipt Date: 20070207
  Transmission Date: 20071010
  Serious: No
  Sender: FDA-Public Use
  Company Number: 2007PV029705

PATIENT
  Age: 68 Year
  Sex: Female

DRUGS (7)
  1. BYETTA [Suspect]
     Indication: DIABETES MELLITUS NON-INSULIN-DEPENDENT
     Dosage: 10 MCG; 5 MCG : BID ;SC
     Route: 058
     Dates: start: 20061211, end: 20070201
  2. BYETTA [Suspect]
     Indication: DIABETES MELLITUS NON-INSULIN-DEPENDENT
     Dosage: 10 MCG; 5 MCG : BID ;SC
     Route: 058
     Dates: start: 20070201
  3. METFORMIN HCL [Concomitant]
  4. GLIPIZIDE [Concomitant]
  5. TOPROL-XL [Concomitant]
  6. AUALICL [Concomitant]
  7. LOTENSIN [Concomitant]

REACTIONS (6)
  - BLOOD GLUCOSE DECREASED [None]
  - BLOOD GLUCOSE INCREASED [None]
  - DIZZINESS [None]
  - DRUG EFFECT DECREASED [None]
  - STOMACH DISCOMFORT [None]
  - TREMOR [None]
